FAERS Safety Report 8565547 (Version 12)
Quarter: 2012Q4

REPORT INFORMATION
  Report Type: Report from Study
  Country: TH (occurrence: TH)
  Receive Date: 20120516
  Receipt Date: 20121029
  Transmission Date: 20130627
  Serious: Yes (Life-Threatening, Hospitalization, Other)
  Sender: FDA-Public Use
  Company Number: TH-ROCHE-1061925

PATIENT
  Age: 79 Year
  Sex: Female
  Weight: 53 kg

DRUGS (15)
  1. TOCILIZUMAB [Suspect]
     Indication: RHEUMATOID ARTHRITIS
     Dosage: last dose prior to the event: 06/Dec/2011
     Route: 042
     Dates: start: 20091224
  2. TOCILIZUMAB [Suspect]
     Route: 042
     Dates: start: 20110712
  3. TOCILIZUMAB [Suspect]
     Route: 042
     Dates: start: 20111010
  4. TOCILIZUMAB [Suspect]
     Route: 042
     Dates: start: 20111107
  5. TOCILIZUMAB [Suspect]
     Route: 042
     Dates: start: 20111206, end: 20120105
  6. AMLODIPINE [Concomitant]
     Indication: HYPERTENSION
     Route: 048
  7. PREDNISOLONE [Concomitant]
     Route: 048
  8. SALAZOSULFAPYRIDINE [Concomitant]
     Route: 048
  9. AMIODARONE HCL [Concomitant]
     Indication: ATRIAL FIBRILLATION
     Route: 065
     Dates: start: 20120418, end: 20120501
  10. AMIODARONE HCL [Concomitant]
     Route: 065
     Dates: start: 20120502
  11. DIGOXIN [Concomitant]
     Indication: ATRIAL FIBRILLATION
     Route: 065
     Dates: start: 20120418, end: 20120418
  12. CARVEDILOL [Concomitant]
     Indication: ATRIAL FIBRILLATION
     Route: 065
     Dates: start: 20120410, end: 20120425
  13. MEROPENEM [Concomitant]
     Indication: PNEUMONIA
     Route: 065
     Dates: start: 20120416, end: 20120429
  14. MEROPENEM [Concomitant]
     Route: 065
     Dates: start: 20120503, end: 20120509
  15. PLACEBO [Suspect]
     Indication: RHEUMATOID ARTHRITIS
     Route: 065

REACTIONS (5)
  - Ischaemic cerebral infarction [Recovered/Resolved]
  - Ischaemic stroke [Recovered/Resolved]
  - Pneumonia [Recovered/Resolved]
  - Acute myocardial infarction [Recovering/Resolving]
  - Atrial fibrillation [Recovering/Resolving]
